FAERS Safety Report 8565072-1 (Version None)
Quarter: 2012Q3

REPORT INFORMATION
  Report Type: 
  Country: None (occurrence: None)
  Receive Date: 20120803
  Receipt Date: 20120716
  Transmission Date: 20120928
  Serious: Yes (Death)
  Sender: FDA-Public Use
  Company Number: US-ROCHE-1086331

PATIENT
  Sex: Male
  Weight: 115.4 kg

DRUGS (12)
  1. OXYCODONE HCL [Concomitant]
     Indication: PAIN
     Route: 048
  2. ZELBORAF [Suspect]
     Dates: start: 20120604, end: 20120618
  3. FENTANYL [Concomitant]
     Indication: PAIN
     Route: 062
  4. ELAVIL [Concomitant]
  5. DEXAMETHASONE [Concomitant]
     Indication: SPINAL CORD COMPRESSION
  6. DILAUDID [Concomitant]
     Indication: PAIN
     Route: 048
  7. ATENOLOL [Concomitant]
     Indication: HYPERTENSION
     Route: 048
  8. DOCUSATE-SENNA [Concomitant]
     Indication: CONSTIPATION
     Route: 048
  9. PANTOPRAZOLE [Concomitant]
     Route: 048
  10. SIMVASTATIN [Concomitant]
     Route: 048
  11. ZELBORAF [Suspect]
     Indication: METASTATIC MALIGNANT MELANOMA
  12. MIRALAX [Concomitant]
     Route: 048

REACTIONS (2)
  - INTESTINAL PERFORATION [None]
  - METASTATIC MALIGNANT MELANOMA [None]
